FAERS Safety Report 7583127-5 (Version None)
Quarter: 2011Q2

REPORT INFORMATION
  Report Type: 
  Country: None (occurrence: None)
  Receive Date: 20110630
  Receipt Date: 20110303
  Transmission Date: 20111010
  Serious: No
  Sender: FDA-Public Use
  Company Number: US-ASTRAZENECA-2011SE11811

PATIENT

DRUGS (1)
  1. ZOLADEX [Suspect]
     Indication: NEOPLASM MALIGNANT
     Dosage: 10.8 MG ON ONE DAY ONLY
     Route: 058
     Dates: start: 20110208

REACTIONS (2)
  - DEVICE EXPULSION [None]
  - IMPLANT SITE HAEMORRHAGE [None]
